FAERS Safety Report 8890329 (Version 2)
Quarter: 2012Q4

REPORT INFORMATION
  Report Type: 
  Country: FR (occurrence: FR)
  Receive Date: 20121107
  Receipt Date: 20121212
  Transmission Date: 20130627
  Serious: Yes (Hospitalization, Other)
  Sender: FDA-Public Use
  Company Number: FR-ELI_LILLY_AND_COMPANY-FR201210007981

PATIENT
  Age: 31 Year
  Sex: Female
  Weight: 88 kg

DRUGS (3)
  1. ZYPREXA [Suspect]
     Indication: BIPOLAR DISORDER
     Dosage: 20 mg, qd
     Route: 048
     Dates: start: 201206, end: 201208
  2. LEPTICUR [Concomitant]
     Indication: PARKINSONISM
     Dosage: 10 mg, qd
     Dates: start: 20120717, end: 20120812
  3. DEPAKOTE [Concomitant]
     Indication: BIPOLAR DISORDER
     Dosage: 500 mg, other
     Dates: start: 20120525, end: 201208

REACTIONS (5)
  - Hyperlipasaemia [Recovering/Resolving]
  - Diabetic ketoacidosis [Recovered/Resolved]
  - Abdominal pain [Unknown]
  - Visual impairment [Unknown]
  - Type 2 diabetes mellitus [Unknown]
